FAERS Safety Report 18526468 (Version 1)
Quarter: 2020Q4

REPORT INFORMATION
  Report Type: Spontaneous
  Country: PR (occurrence: US)
  Receive Date: 20201120
  Receipt Date: 20201120
  Transmission Date: 20210114
  Serious: Yes (Disabling, Other)
  Sender: FDA-Public Use
  Company Number: US-SA-2020SA317423

PATIENT

DRUGS (1)
  1. ZANTAC [Suspect]
     Active Substance: RANITIDINE HYDROCHLORIDE
     Dosage: UNK
     Dates: start: 201002, end: 201908

REACTIONS (4)
  - Endometrial cancer [Unknown]
  - Anhedonia [Unknown]
  - Pain [Unknown]
  - Disability [Unknown]

NARRATIVE: CASE EVENT DATE: 201507
